FAERS Safety Report 8336473-1 (Version None)
Quarter: 2012Q2

REPORT INFORMATION
  Report Type: 
  Country: None (occurrence: None)
  Receive Date: 20120504
  Receipt Date: 20120502
  Transmission Date: 20120825
  Serious: Yes (Death)
  Sender: FDA-Public Use
  Company Number: PHHY2012BR037626

PATIENT
  Age: 68 Year
  Sex: Male

DRUGS (1)
  1. FORMOTEROL FUMARATE [Suspect]
     Indication: DYSPNOEA
     Dosage: 2 INHALATIONS DAILY

REACTIONS (2)
  - EMPHYSEMA [None]
  - DYSPNOEA [None]
